FAERS Safety Report 6419324-1 (Version None)
Quarter: 2009Q4

REPORT INFORMATION
  Report Type: 
  Country: None (occurrence: None)
  Receive Date: 20091029
  Receipt Date: 20091016
  Transmission Date: 20100525
  Serious: Yes (Hospitalization)
  Sender: FDA-Public Use
  Company Number: US-BAXTER-2009BH016128

PATIENT
  Age: 32 Year
  Sex: Male
  Weight: 82 kg

DRUGS (1)
  1. IMMUNE GLOBULIN SUBCUTANOUS (HUMAN), 10% SOLUTION [Suspect]
     Indication: IMMUNODEFICIENCY
     Route: 058
     Dates: start: 20091007, end: 20091007

REACTIONS (1)
  - HAEMOLYTIC ANAEMIA [None]
